FAERS Safety Report 10097968 (Version 2)
Quarter: 2014Q2

REPORT INFORMATION
  Report Type: Report from Study
  Country: CA (occurrence: CA)
  Receive Date: 20140423
  Receipt Date: 20140519
  Transmission Date: 20141212
  Serious: Yes (Death)
  Sender: FDA-Public Use
  Company Number: CA-BRISTOL-MYERS SQUIBB COMPANY-20628434

PATIENT
  Age: 75 Year
  Sex: Female

DRUGS (10)
  1. ORENCIA [Suspect]
     Indication: RHEUMATOID ARTHRITIS
     Dosage: 1 DF=750 NO UNITS
     Route: 042
     Dates: start: 20090903, end: 20140312
  2. PREVACID [Concomitant]
     Dates: start: 2009
  3. AMLODIPINE [Concomitant]
     Dosage: AT NIGHT
  4. CITALOPRAM [Concomitant]
     Dosage: AT NIGHT
  5. OXAZEPAM [Concomitant]
     Dosage: AT NIGHT
  6. SINEMET CR [Concomitant]
     Dosage: 1 DF=100/25 MG
  7. ELAVIL [Concomitant]
     Dosage: ONCE AT NIGHT. 1 DF= 12.5-25 MG
  8. ATIVAN [Concomitant]
     Dosage: ONCE AT NIGHT.
  9. OXYCONTIN [Concomitant]
  10. OXYCODONE [Concomitant]

REACTIONS (1)
  - Death [Fatal]
